FAERS Safety Report 4487646-X (Version None)
Quarter: 2004Q4

REPORT INFORMATION
  Report Type: 
  Country: None (occurrence: None)
  Receive Date: 20041027
  Receipt Date: 20041027
  Transmission Date: 20050328
  Serious: Yes (Other)
  Sender: FDA-Public Use
  Company Number: None

PATIENT
  Sex: Female
  Weight: 53.0709 kg

DRUGS (1)
  1. ORTHO TRI-CYCLEN LO [Suspect]
     Indication: CONTRACEPTION
     Dosage: ONE TAB DAILY ORALLY
     Route: 048
     Dates: start: 20031201

REACTIONS (4)
  - METRORRHAGIA [None]
  - MOOD SWINGS [None]
  - RASH [None]
  - VAGINAL DISCHARGE [None]
